FAERS Safety Report 7591774-X (Version None)
Quarter: 2011Q3

REPORT INFORMATION
  Report Type: 
  Country: None (occurrence: None)
  Receive Date: 20110706
  Receipt Date: 20110624
  Transmission Date: 20111222
  Serious: Yes (Other)
  Sender: FDA-Public Use
  Company Number: US-BAYER-2011-004970

PATIENT
  Age: 51 Year
  Sex: Female
  Weight: 88 kg

DRUGS (3)
  1. YAZ [Suspect]
     Dosage: UNK
     Dates: start: 20060101, end: 20080101
  2. DROSPIRENONE AND ETHINYL ESTRADIOL [Suspect]
     Indication: PRODUCT USED FOR UNKNOWN INDICATION
     Dosage: UNK
     Dates: start: 20080901, end: 20091031
  3. YASMIN [Suspect]

REACTIONS (5)
  - CHOLECYSTITIS [None]
  - PAIN [None]
  - BILE DUCT OBSTRUCTION [None]
  - GALLBLADDER DISORDER [None]
  - HEPATIC FUNCTION ABNORMAL [None]
